FAERS Safety Report 19755456 (Version 1)
Quarter: 2021Q3

REPORT INFORMATION
  Report Type: Spontaneous
  Country: US (occurrence: US)
  Receive Date: 20210827
  Receipt Date: 20210827
  Transmission Date: 20211014
  Serious: Yes (Other)
  Sender: FDA-Public Use
  Company Number: US-MEDEXUS PHARMA, INC.-2021MED00200

PATIENT
  Age: 77 Year
  Sex: Female
  Weight: 66.21 kg

DRUGS (13)
  1. VITAMIN D [Concomitant]
     Active Substance: VITAMIN D NOS
  2. CALCIUM [Concomitant]
     Active Substance: CALCIUM
  3. RASUVO [Suspect]
     Active Substance: METHOTREXATE SODIUM
     Dosage: 15 MG, INJECTED INTO THE THIGH 1X/WEEK ON MONDAYS
     Dates: start: 2017
  4. BIOTIN [Concomitant]
     Active Substance: BIOTIN
  5. LOSARTAN. [Concomitant]
     Active Substance: LOSARTAN
  6. RASUVO [Suspect]
     Active Substance: METHOTREXATE SODIUM
     Indication: AUTOIMMUNE DISORDER
     Dosage: 15 MG, INJECTED INTO THE THIGH 1X/WEEK ON WEDNESDAYS
     Dates: start: 2017
  7. LABETALOL [Concomitant]
     Active Substance: LABETALOL\LABETALOL HYDROCHLORIDE
  8. HYDROCHLOROTHIAZIDE. [Concomitant]
     Active Substance: HYDROCHLOROTHIAZIDE
  9. PILOCARPINE. [Concomitant]
     Active Substance: PILOCARPINE
  10. VITAMIN C [Concomitant]
     Active Substance: ASCORBIC ACID
  11. K?TABS [Concomitant]
  12. COENZYME Q10 [Concomitant]
     Active Substance: DIETARY SUPPLEMENT\UBIDECARENONE
  13. PREDNISONE. [Concomitant]
     Active Substance: PREDNISONE
     Dosage: 4 MG, 1X/DAY

REACTIONS (11)
  - Needle issue [Recovered/Resolved]
  - Macular degeneration [Unknown]
  - Cataract [Unknown]
  - Arthritis [Recovered/Resolved]
  - Skin disorder [Not Recovered/Not Resolved]
  - Chest pain [Recovered/Resolved]
  - Off label use [Not Recovered/Not Resolved]
  - Product dose omission issue [Recovered/Resolved]
  - Stress [Recovered/Resolved]
  - Accidental exposure to product [Recovered/Resolved]
  - Device mechanical issue [Recovered/Resolved]

NARRATIVE: CASE EVENT DATE: 2017
